FAERS Safety Report 18747982 (Version 1)
Quarter: 2021Q1

REPORT INFORMATION
  Report Type: Spontaneous
  Country: US (occurrence: US)
  Receive Date: 20210115
  Receipt Date: 20210115
  Transmission Date: 20210419
  Serious: Yes (Death, Hospitalization)
  Sender: FDA-Public Use
  Company Number: US-PFIZER INC-2021019229

PATIENT
  Age: 68 Year
  Sex: Male

DRUGS (1)
  1. LIDOCAINE HCL [Suspect]
     Active Substance: LIDOCAINE HYDROCHLORIDE
     Dosage: 2 GRAM (GM)
     Route: 051

REACTIONS (2)
  - Death [Fatal]
  - Incorrect dose administered [Fatal]

NARRATIVE: CASE EVENT DATE: 2019
